FAERS Safety Report 21641157 (Version 1)
Quarter: 2022Q4

REPORT INFORMATION
  Report Type: Spontaneous
  Country: US (occurrence: US)
  Receive Date: 20221125
  Receipt Date: 20221125
  Transmission Date: 20230113
  Serious: Yes (Other)
  Sender: FDA-Public Use
  Company Number: US-Shilpa Medicare Limited-SML-US-2022-01505

PATIENT
  Age: 51 Year
  Sex: Male

DRUGS (3)
  1. IMATINIB [Suspect]
     Active Substance: IMATINIB
     Indication: Gastrointestinal stromal tumour
  2. IMATINIB [Suspect]
     Active Substance: IMATINIB
     Dosage: DOSE REDUCED
  3. IMATINIB [Suspect]
     Active Substance: IMATINIB
     Dosage: DOSE INCREASED

REACTIONS (3)
  - Rash [Recovering/Resolving]
  - Disease progression [Unknown]
  - Drug ineffective [Unknown]
